FAERS Safety Report 4448120-X (Version None)
Quarter: 2004Q3

REPORT INFORMATION
  Report Type: 
  Country: None (occurrence: None)
  Receive Date: 20040913
  Receipt Date: 20040907
  Transmission Date: 20050211
  Serious: Yes (Other)
  Sender: FDA-Public Use
  Company Number: BW-BRISTOL-MYERS SQUIBB COMPANY-12694477

PATIENT
  Age: 38 Year
  Sex: Male

DRUGS (2)
  1. EFAVIRENZ [Suspect]
     Indication: HIV INFECTION
     Dates: start: 20040602
  2. COMBIVIR [Suspect]
     Indication: HIV INFECTION
     Dates: start: 20040602

REACTIONS (1)
  - NEUTROPENIA [None]
